FAERS Safety Report 23741755 (Version 2)
Quarter: 2024Q2

REPORT INFORMATION
  Report Type: Spontaneous
  Country: IN (occurrence: None)
  Receive Date: 20240415
  Receipt Date: 20240520
  Transmission Date: 20240716
  Serious: Yes (Hospitalization, Other)
  Sender: FDA-Public Use
  Company Number: IN-Unichem Pharmaceuticals (USA) Inc-UCM202404-000390

PATIENT
  Age: 74 Year
  Sex: Female
  Weight: 55 kg

DRUGS (23)
  1. DIVALPROEX SODIUM [Suspect]
     Active Substance: DIVALPROEX SODIUM
     Indication: Paraesthesia
  2. DIVALPROEX SODIUM [Suspect]
     Active Substance: DIVALPROEX SODIUM
     Dosage: UNKNOWN (TAPERED SLOWLY)
  3. PRAMIPEXOLE DIHYDROCHLORIDE [Suspect]
     Active Substance: PRAMIPEXOLE DIHYDROCHLORIDE
     Indication: Tremor
  4. PRAMIPEXOLE DIHYDROCHLORIDE [Suspect]
     Active Substance: PRAMIPEXOLE DIHYDROCHLORIDE
     Indication: Gait disturbance
     Dosage: UNKNOWN (TAPERING OF DOSES)
  5. CARBIDOPA\LEVODOPA [Suspect]
     Active Substance: CARBIDOPA\LEVODOPA
     Indication: Tremor
  6. CARBIDOPA\LEVODOPA [Suspect]
     Active Substance: CARBIDOPA\LEVODOPA
     Indication: Gait disturbance
     Dosage: UNKNOWN (TAPERING OF DOSES)
  7. SPIRONOLACTONE [Suspect]
     Active Substance: SPIRONOLACTONE
     Indication: Peripheral swelling
  8. LEVOSULPIRIDE\RABEPRAZOLE [Suspect]
     Active Substance: LEVOSULPIRIDE\RABEPRAZOLE
     Indication: Gastritis
     Dosage: 75/20 MG
  9. Clidinium-chlordiazepoxide [Concomitant]
     Indication: Abdominal symptom
     Dosage: 2.5/5 MG
  10. ATORVASTATIN [Concomitant]
     Active Substance: ATORVASTATIN
     Indication: Product used for unknown indication
  11. SILODOSIN [Concomitant]
     Active Substance: SILODOSIN
     Indication: Urinary retention
  12. BETHANECHOL [Concomitant]
     Active Substance: BETHANECHOL
     Indication: Urinary retention
  13. Escitalopram-Clonazepam [Concomitant]
     Indication: Product used for unknown indication
     Dosage: 10/0.5 MG
  14. Montelukast-Acebrophylline [Concomitant]
     Indication: Product used for unknown indication
     Dosage: 10/200 MG
  15. GLICLAZIDE [Concomitant]
     Active Substance: GLICLAZIDE
     Indication: Diabetes mellitus
  16. ACETAMINOPHEN [Concomitant]
     Active Substance: ACETAMINOPHEN
     Indication: Back pain
  17. ACETAMINOPHEN [Concomitant]
     Active Substance: ACETAMINOPHEN
     Indication: Arthralgia
  18. INSULIN GLARGINE [Concomitant]
     Active Substance: INSULIN GLARGINE
     Indication: Diabetes mellitus
     Dosage: VARYING DOSES (UNKNOWN)
  19. VILDAGLIPTIN [Concomitant]
     Active Substance: VILDAGLIPTIN
     Indication: Diabetes mellitus
  20. Fluticasone and Formoterol [Concomitant]
     Indication: Product used for unknown indication
     Dosage: AS NEEDED BASIS UNKNOWN DOSE
  21. METFORMIN [Concomitant]
     Active Substance: METFORMIN HYDROCHLORIDE
     Indication: Diabetes mellitus
     Dosage: HALF TABLET
  22. VITAMIN D [Concomitant]
     Active Substance: VITAMIN D NOS
     Indication: Product used for unknown indication
     Dosage: 60000 UNITS
  23. Atorvastatin/clopidogrel [Concomitant]
     Indication: Chest pain
     Dosage: 10/75 MG

REACTIONS (15)
  - Muscle rigidity [Recovered/Resolved]
  - Fall [Recovered/Resolved]
  - Unresponsive to stimuli [Recovered/Resolved]
  - Urinary retention [Recovered/Resolved]
  - Urine flow decreased [Recovered/Resolved]
  - Hyperkalaemia [Recovered/Resolved]
  - Depressed level of consciousness [Recovered/Resolved]
  - Hyponatraemia [Recovered/Resolved]
  - Tremor [Recovered/Resolved]
  - Inappropriate antidiuretic hormone secretion [Recovered/Resolved]
  - Decreased appetite [Recovered/Resolved]
  - Constipation [Recovered/Resolved]
  - Gait disturbance [Recovered/Resolved]
  - Nausea [Recovered/Resolved]
  - Vertigo [Recovered/Resolved]
